FAERS Safety Report 5599756-4 (Version None)
Quarter: 2008Q1

REPORT INFORMATION
  Report Type: 
  Country: None (occurrence: None)
  Receive Date: 20080118
  Receipt Date: 20080118
  Transmission Date: 20080703
  Serious: Yes (Hospitalization)
  Sender: FDA-Public Use
  Company Number: None

PATIENT
  Age: 69 Year
  Sex: Male

DRUGS (2)
  1. METOPROLOL TARTRATE [Suspect]
     Indication: ATRIAL FIBRILLATION
     Dosage: 100MG BID PO
     Route: 048
     Dates: start: 20070820, end: 20071203
  2. DILTIAZEM HCL [Suspect]
     Dosage: 10MG ONCE IV
     Route: 042
     Dates: start: 20071203, end: 20071203

REACTIONS (3)
  - BRADYCARDIA [None]
  - INCORRECT DOSE ADMINISTERED [None]
  - PALPITATIONS [None]
